FAERS Safety Report 8298868-4 (Version None)
Quarter: 2012Q2

REPORT INFORMATION
  Report Type: 
  Country: None (occurrence: None)
  Receive Date: 20120419
  Receipt Date: 20120411
  Transmission Date: 20120825
  Serious: Yes (Other)
  Sender: FDA-Public Use
  Company Number: SE-BAYER-2012-022702

PATIENT
  Sex: Female

DRUGS (2)
  1. MIRENA [Suspect]
     Indication: MENORRHAGIA
     Dosage: UNK
     Route: 015
     Dates: start: 20070101, end: 20110629
  2. MIRENA [Suspect]
     Dosage: UNK
     Route: 015
     Dates: start: 20110914, end: 20120307

REACTIONS (1)
  - CERVICAL DYSPLASIA [None]
